FAERS Safety Report 20165535 (Version 2)
Quarter: 2022Q1

REPORT INFORMATION
  Report Type: Spontaneous
  Country: JP (occurrence: None)
  Receive Date: 20211209
  Receipt Date: 20220204
  Transmission Date: 20220423
  Serious: Yes (Hospitalization, Other)
  Sender: FDA-Public Use
  Company Number: 2021A853379

PATIENT
  Age: 76 Year
  Sex: Male
  Weight: 47 kg

DRUGS (9)
  1. DAPAGLIFLOZIN [Suspect]
     Active Substance: DAPAGLIFLOZIN
     Indication: Cardiac failure chronic
     Route: 048
     Dates: start: 20210519, end: 20210727
  2. ENTRESTO [Suspect]
     Active Substance: SACUBITRIL\VALSARTAN
     Indication: Cardiac failure chronic
     Route: 048
     Dates: start: 20210619, end: 20210716
  3. ENTRESTO [Suspect]
     Active Substance: SACUBITRIL\VALSARTAN
     Indication: Cardiac failure chronic
     Route: 048
     Dates: start: 20210717, end: 20210810
  4. ESAXERENONE [Concomitant]
     Active Substance: ESAXERENONE
     Indication: Hypertension
     Route: 048
     Dates: start: 20200928, end: 20210703
  5. ESAXERENONE [Concomitant]
     Active Substance: ESAXERENONE
     Indication: Hypertension
     Route: 048
     Dates: start: 20210704, end: 20210716
  6. MIRCERA [Concomitant]
     Active Substance: METHOXY POLYETHYLENE GLYCOL-EPOETIN BETA
     Indication: Nephrogenic anaemia
     Route: 042
     Dates: start: 20201023, end: 20210716
  7. TELMISARTAN [Concomitant]
     Active Substance: TELMISARTAN
     Route: 065
  8. ROZEREM [Concomitant]
     Active Substance: RAMELTEON
     Dosage: DOSE UNKNOWN
     Route: 065
  9. SENNOSIDES [Concomitant]
     Active Substance: SENNOSIDES
     Indication: Constipation
     Dosage: AFTER MEALS
     Route: 048
     Dates: start: 20200825, end: 20210727

REACTIONS (2)
  - Dehydration [Recovering/Resolving]
  - Cardiac failure chronic [Unknown]

NARRATIVE: CASE EVENT DATE: 20210101
